FAERS Safety Report 11647920 (Version 1)
Quarter: 2015Q4

REPORT INFORMATION
  Report Type: Spontaneous
  Country: GB (occurrence: GB)
  Receive Date: 20151021
  Receipt Date: 20151021
  Transmission Date: 20160304
  Serious: Yes (Other)
  Sender: FDA-Public Use
  Company Number: GB-WATSON-2015-22126

PATIENT
  Age: 43 Year
  Sex: Male

DRUGS (2)
  1. DISULFIRAM (UNKNOWN) [Suspect]
     Active Substance: DISULFIRAM
     Indication: ALCOHOL ABUSE
     Dosage: UNK UNK, UNKNOWN
     Route: 048
  2. MIRTAZAPINE. [Concomitant]
     Active Substance: MIRTAZAPINE
     Indication: PRODUCT USED FOR UNKNOWN INDICATION
     Dosage: UNK UNK, UNKNOWN
     Route: 065

REACTIONS (6)
  - Disturbance in attention [Unknown]
  - Feeling abnormal [Unknown]
  - Suicidal ideation [Unknown]
  - Dizziness [Unknown]
  - Confusional state [Unknown]
  - Paranoia [Unknown]
